FAERS Safety Report 7571121-X (Version None)
Quarter: 2011Q2

REPORT INFORMATION
  Report Type: 
  Country: None (occurrence: None)
  Receive Date: 20110620
  Receipt Date: 20110607
  Transmission Date: 20111010
  Serious: Yes (Hospitalization, Other)
  Sender: FDA-Public Use
  Company Number: AXC-2011-000256

PATIENT
  Sex: Male

DRUGS (6)
  1. PREDNISOLONE [Suspect]
     Indication: COLITIS ULCERATIVE
     Dosage: #1. 10MG TO 60MG, QD, ORAL
     Route: 048
  2. MESALAMINE [Suspect]
     Indication: COLITIS ULCERATIVE
     Dosage: 1000 MG, TID, ORAL,1500 MG, BID, ORAL, 1500 MG, TID, ORAL
     Route: 048
  3. AZATHIOPRINE [Suspect]
     Indication: COLITIS ULCERATIVE
     Dosage: 50MG TO 150MG, QD,
  4. INFLIXIMAB (INFLIXIMAB) UNKNOWN [Suspect]
     Indication: COLITIS ULCERATIVE
     Dosage: 300 MG, INTRAVENOUS
     Route: 042
  5. ADALIMUMAB (ADALIMUMAB) [Suspect]
     Indication: COLITIS ULCERATIVE
     Dosage: 160MG, EVERY 2 WEEKS,  SUBCUTANEOUS,  40MG, EVERY 2 WEEKS, SUBCUTANEOUS
     Route: 058
  6. PROBIOTIC VSL#3  UNKNOWN [Suspect]
     Indication: COLITIS ULCERATIVE

REACTIONS (22)
  - DISEASE RECURRENCE [None]
  - MYALGIA [None]
  - ABDOMINAL PAIN LOWER [None]
  - ENCEPHALITIS VIRAL [None]
  - URINARY INCONTINENCE [None]
  - MUSCULAR WEAKNESS [None]
  - RENAL FAILURE ACUTE [None]
  - DEEP VEIN THROMBOSIS [None]
  - HAEMATOCHEZIA [None]
  - HEADACHE [None]
  - FLUSHING [None]
  - MALAISE [None]
  - DYSPHONIA [None]
  - FATIGUE [None]
  - PYREXIA [None]
  - RENAL TUBULAR NECROSIS [None]
  - GASTROINTESTINAL HAEMORRHAGE [None]
  - BLOOD CREATINE PHOSPHOKINASE INCREASED [None]
  - ANAEMIA [None]
  - TREMOR [None]
  - BALANCE DISORDER [None]
  - SEPSIS [None]
